FAERS Safety Report 14075053 (Version 2)
Quarter: 2018Q1

REPORT INFORMATION
  Report Type: Spontaneous
  Country: US (occurrence: US)
  Receive Date: 20171011
  Receipt Date: 20180301
  Transmission Date: 20180508
  Serious: Yes (Other)
  Sender: FDA-Public Use
  Company Number: US-BAYER-2017-189768

PATIENT
  Age: 30 Year
  Sex: Female
  Weight: 112 kg

DRUGS (4)
  1. MIRENA [Suspect]
     Active Substance: LEVONORGESTREL
     Indication: CONTRACEPTION
     Dosage: 20 MCG/24HR, CONT
     Route: 015
     Dates: start: 20170908, end: 20170908
  2. MIRENA [Suspect]
     Active Substance: LEVONORGESTREL
     Indication: CONTRACEPTION
  3. IBUPROFEN. [Concomitant]
     Active Substance: IBUPROFEN
     Indication: PAIN
     Dosage: UNK UNK, Q6WK
     Dates: start: 20170728
  4. MIRENA [Suspect]
     Active Substance: LEVONORGESTREL
     Indication: CONTRACEPTION
     Dosage: 20 MCG/24HR, CONT
     Route: 015
     Dates: end: 2017

REACTIONS (12)
  - Procedural pain [None]
  - Constipation [None]
  - Headache [None]
  - Abdominal pain [None]
  - Bipolar disorder [None]
  - Device expulsion [None]
  - Ovarian cyst [None]
  - Pelvic pain [Not Recovered/Not Resolved]
  - Infrequent bowel movements [None]
  - Arthralgia [None]
  - Device deployment issue [None]
  - Complication of device insertion [None]

NARRATIVE: CASE EVENT DATE: 20170505
